FAERS Safety Report 10511023 (Version 1)
Quarter: 2014Q4

REPORT INFORMATION
  Report Type: Spontaneous
  Country: US (occurrence: None)
  Receive Date: 20141009
  Receipt Date: 20141009
  Transmission Date: 20150528
  Serious: No
  Sender: FDA-Public Use
  Company Number: None

PATIENT
  Age: 55 Year
  Sex: Female

DRUGS (2)
  1. TECFIDERA [Suspect]
     Active Substance: DIMETHYL FUMARATE
     Indication: MULTIPLE SCLEROSIS
     Dosage: 240MG  2X DAYS  PO
     Route: 048
     Dates: start: 20140918, end: 20141005
  2. TECFIDERA [Suspect]
     Active Substance: DIMETHYL FUMARATE
     Indication: MULTIPLE SCLEROSIS
     Dosage: 120MG  2XDAILY X 7 DAYS  PO
     Route: 048
     Dates: start: 20140911, end: 20140917

REACTIONS (4)
  - Incoherent [None]
  - Feeling hot [None]
  - Gait disturbance [None]
  - Abdominal pain upper [None]

NARRATIVE: CASE EVENT DATE: 20140911
